FAERS Safety Report 15454798 (Version 1)
Quarter: 2018Q3

REPORT INFORMATION
  Report Type: Spontaneous
  Country: US (occurrence: US)
  Receive Date: 20180927
  Receipt Date: 20180927
  Transmission Date: 20181010
  Serious: Yes (Hospitalization)
  Sender: FDA-Public Use
  Company Number: None

PATIENT
  Age: 76 Year
  Sex: Male
  Weight: 75.3 kg

DRUGS (10)
  1. OMEPRAZOLE. [Concomitant]
     Active Substance: OMEPRAZOLE
  2. MEDICAL MARIJUANE [Concomitant]
  3. CALCIUM WITH VIT D [Concomitant]
  4. PEMBROLIZUMAB 200 MG [Suspect]
     Active Substance: PEMBROLIZUMAB
     Indication: OESOPHAGEAL CARCINOMA
     Dates: start: 20180725
  5. SIMVASTATIN. [Concomitant]
     Active Substance: SIMVASTATIN
  6. HYDROCODONE [Concomitant]
     Active Substance: HYDROCODONE
  7. BABY ASPIRIN [Concomitant]
     Active Substance: ASPIRIN
  8. AQUAPHOR CREAM [Concomitant]
  9. ALEVE [Concomitant]
     Active Substance: NAPROXEN SODIUM
  10. METAPROLOL [Concomitant]
     Active Substance: METOPROLOL

REACTIONS (5)
  - Pain [None]
  - Metastases to bone [None]
  - Musculoskeletal pain [None]
  - Spinal osteoarthritis [None]
  - Intervertebral disc disorder [None]

NARRATIVE: CASE EVENT DATE: 20180925
